FAERS Safety Report 6240493-0 (Version None)
Quarter: 2009Q2

REPORT INFORMATION
  Report Type: 
  Country: None (occurrence: None)
  Receive Date: 20090623
  Receipt Date: 20090330
  Transmission Date: 20091009
  Serious: No
  Sender: FDA-Public Use
  Company Number: US-ASTRAZENECA-2009UW08006

PATIENT
  Age: 68 Year
  Sex: Female
  Weight: 56.7 kg

DRUGS (9)
  1. PULMICORT RESPULES [Suspect]
     Indication: EMPHYSEMA
     Route: 055
     Dates: start: 20090316
  2. ASPIRIN [Concomitant]
  3. ALBUTEROL W/IPRATROPIUM [Concomitant]
  4. SYNTHROID [Concomitant]
  5. MULTI-VITAMIN [Concomitant]
  6. CALCIUM [Concomitant]
  7. MAGNESIUM SULFATE [Concomitant]
  8. ZINC [Concomitant]
  9. FOLIC ACID [Concomitant]

REACTIONS (1)
  - FIBROMYALGIA [None]
